FAERS Safety Report 12480308 (Version 1)
Quarter: 2016Q2

REPORT INFORMATION
  Report Type: Report from Study
  Country: US (occurrence: US)
  Receive Date: 20160620
  Receipt Date: 20160620
  Transmission Date: 20160815
  Serious: Yes (Hospitalization)
  Sender: FDA-Public Use
  Company Number: US-EISAI MEDICAL RESEARCH-EC-2015-013195

PATIENT
  Age: 57 Year
  Sex: Female
  Weight: 45 kg

DRUGS (12)
  1. LENVIMA [Suspect]
     Active Substance: LENVATINIB
     Route: 048
     Dates: start: 20160126, end: 20160613
  2. KLONOPIN [Concomitant]
     Active Substance: CLONAZEPAM
  3. ATENOLOL. [Concomitant]
     Active Substance: ATENOLOL
  4. XARELTO [Concomitant]
     Active Substance: RIVAROXABAN
  5. OXYGEN. [Concomitant]
     Active Substance: OXYGEN
  6. MEGACE [Concomitant]
     Active Substance: MEGESTROL ACETATE
  7. LENVIMA [Suspect]
     Active Substance: LENVATINIB
     Indication: THYROID CANCER
     Route: 048
     Dates: start: 20151217
  8. TRAMADOL. [Concomitant]
     Active Substance: TRAMADOL
  9. AQUAPHOR [Concomitant]
     Active Substance: PETROLATUM
  10. MEGACE [Concomitant]
     Active Substance: MEGESTROL ACETATE
  11. LEVOTHYROXINE. [Concomitant]
     Active Substance: LEVOTHYROXINE
  12. NEURONTIN [Concomitant]
     Active Substance: GABAPENTIN

REACTIONS (21)
  - Fatigue [Unknown]
  - Dysgeusia [Unknown]
  - Hypertension [Unknown]
  - Dysphonia [Unknown]
  - Headache [Unknown]
  - Chest pain [Unknown]
  - Pain [Unknown]
  - Vomiting [Unknown]
  - Paraesthesia [Unknown]
  - Insomnia [Unknown]
  - Haemoptysis [Not Recovered/Not Resolved]
  - Asthenia [Unknown]
  - Epistaxis [Unknown]
  - Skin exfoliation [Unknown]
  - Alopecia [Unknown]
  - Decreased appetite [Unknown]
  - Weight decreased [Unknown]
  - Diarrhoea [Unknown]
  - Dysphagia [Unknown]
  - Pain of skin [Unknown]
  - Vascular pain [Unknown]

NARRATIVE: CASE EVENT DATE: 201512
